FAERS Safety Report 20911566 (Version 1)
Quarter: 2022Q2

REPORT INFORMATION
  Report Type: Spontaneous
  Country: US (occurrence: US)
  Receive Date: 20220603
  Receipt Date: 20220603
  Transmission Date: 20220721
  Serious: No
  Sender: FDA-Public Use
  Company Number: US-ELI_LILLY_AND_COMPANY-US202205006476

PATIENT
  Age: 54 Year
  Sex: Female

DRUGS (1)
  1. BAMLANIVIMAB [Suspect]
     Active Substance: BAMLANIVIMAB
     Indication: COVID-19
     Dosage: UNK, UNKNOWN
     Route: 065
     Dates: start: 20220512

REACTIONS (3)
  - Anxiety [Unknown]
  - Panic attack [Unknown]
  - Throat tightness [Unknown]

NARRATIVE: CASE EVENT DATE: 20220513
